FAERS Safety Report 23390421 (Version 2)
Quarter: 2024Q1

REPORT INFORMATION
  Report Type: Spontaneous
  Country: US (occurrence: US)
  Receive Date: 20240111
  Receipt Date: 20240229
  Transmission Date: 20240410
  Serious: No
  Sender: FDA-Public Use
  Company Number: US-Blueprint Medicines Corporation-1931

PATIENT
  Sex: Female

DRUGS (3)
  1. AYVAKIT [Suspect]
     Active Substance: AVAPRITINIB
     Indication: Systemic mastocytosis
     Route: 065
  2. AYVAKIT [Suspect]
     Active Substance: AVAPRITINIB
     Route: 065
     Dates: start: 20210910
  3. AYVAKIT [Suspect]
     Active Substance: AVAPRITINIB
     Route: 048
     Dates: start: 20210924

REACTIONS (8)
  - Malaise [Recovered/Resolved]
  - Skin lesion [Unknown]
  - Diarrhoea [Unknown]
  - Vomiting [Unknown]
  - Feeling hot [Unknown]
  - Cold sweat [Unknown]
  - Illness [Unknown]
  - Gastrointestinal disorder [Unknown]
